FAERS Safety Report 16863815 (Version 1)
Quarter: 2019Q3

REPORT INFORMATION
  Report Type: Spontaneous
  Country: RO (occurrence: RO)
  Receive Date: 20190927
  Receipt Date: 20190927
  Transmission Date: 20191005
  Serious: Yes (Hospitalization, Other)
  Sender: FDA-Public Use
  Company Number: PHHY2019RO223356

PATIENT

DRUGS (1)
  1. FLUTICASONE+SALMETEROL [Suspect]
     Active Substance: FLUTICASONE PROPIONATE\SALMETEROL XINAFOATE
     Indication: PRODUCT USED FOR UNKNOWN INDICATION
     Dosage: UNK(50/500)
     Route: 065

REACTIONS (6)
  - Peripheral vascular disorder [Unknown]
  - Cardiovascular disorder [Unknown]
  - Chronic obstructive pulmonary disease [Unknown]
  - Dysphonia [Unknown]
  - Mental disorder [Unknown]
  - Respiratory failure [Unknown]
